FAERS Safety Report 26143234 (Version 1)
Quarter: 2025Q4

REPORT INFORMATION
  Report Type: Spontaneous
  Country: US (occurrence: None)
  Receive Date: 20251211
  Receipt Date: 20251211
  Transmission Date: 20260117
  Serious: No
  Sender: APOTEX
  Company Number: US-APOTEX-2025AP033111

PATIENT
  Age: 37 Year
  Sex: Female

DRUGS (1)
  1. CARBIDOPA\LEVODOPA [Suspect]
     Active Substance: CARBIDOPA\LEVODOPA
     Indication: Rapid-onset dystonia-parkinsonism
     Dosage: UNK
     Route: 065

REACTIONS (2)
  - Nausea [Unknown]
  - Therapeutic response shortened [Unknown]
